FAERS Safety Report 21865390 (Version 2)
Quarter: 2023Q1

REPORT INFORMATION
  Report Type: Other
  Country: US (occurrence: None)
  Receive Date: 20230116
  Receipt Date: 20230329
  Transmission Date: 20230418
  Serious: Yes (Hospitalization)
  Sender: FDA-Public Use
  Company Number: US-ROCHE-2841332

PATIENT
  Age: 57 Year
  Sex: Female
  Weight: 131.66 kg

DRUGS (20)
  1. OCREVUS [Suspect]
     Active Substance: OCRELIZUMAB
     Indication: Relapsing-remitting multiple sclerosis
     Dosage: DATE OF TREATMENT: 03/MAR/2020, 28/OCT/2020, 29/APR/2021
     Route: 042
     Dates: start: 202003
  2. OCREVUS [Suspect]
     Active Substance: OCRELIZUMAB
     Route: 042
     Dates: start: 20200218
  3. OCREVUS [Suspect]
     Active Substance: OCRELIZUMAB
     Route: 042
     Dates: start: 20220218
  4. GABAPENTIN [Suspect]
     Active Substance: GABAPENTIN
     Indication: Product used for unknown indication
     Route: 065
  5. PEPCID [Concomitant]
     Active Substance: FAMOTIDINE
     Indication: Gastric ulcer haemorrhage
     Route: 048
  6. PANTOPRAZOLE [Concomitant]
     Active Substance: PANTOPRAZOLE
     Route: 048
     Dates: start: 2019
  7. LISINOPRIL [Concomitant]
     Active Substance: LISINOPRIL
     Indication: Blood pressure measurement
     Route: 048
     Dates: start: 2019
  8. MODAFINIL [Concomitant]
     Active Substance: MODAFINIL
     Indication: Feeling abnormal
     Route: 048
     Dates: start: 2020
  9. SUCRALFATE [Concomitant]
     Active Substance: SUCRALFATE
     Route: 048
     Dates: start: 2019
  10. SPIRIVA RESPIMAT [Concomitant]
     Active Substance: TIOTROPIUM BROMIDE
     Indication: Chronic obstructive pulmonary disease
     Route: 055
     Dates: start: 2018
  11. VITAMIN D2 [Concomitant]
     Active Substance: ERGOCALCIFEROL
     Route: 048
  12. PRAMIPEXOLE [Concomitant]
     Active Substance: PRAMIPEXOLE
     Indication: Restless legs syndrome
     Route: 048
     Dates: start: 2019
  13. LASIX [Concomitant]
     Active Substance: FUROSEMIDE
     Indication: Blood pressure measurement
     Route: 048
     Dates: start: 2017
  14. BENZTROPINE [Concomitant]
     Active Substance: BENZTROPINE
     Indication: Muscle spasms
     Dosage: 2 TABLETS 3 X DAILY
     Route: 048
  15. HYDROXYZINE [Concomitant]
     Active Substance: HYDROXYZINE HYDROCHLORIDE
     Indication: Anxiety
     Route: 048
     Dates: start: 202009
  16. ALPRAZOLAM [Concomitant]
     Active Substance: ALPRAZOLAM
     Indication: Anxiety
     Route: 048
     Dates: start: 2018
  17. PERCOCET [Concomitant]
     Active Substance: ACETAMINOPHEN\OXYCODONE HYDROCHLORIDE
     Indication: Pain
     Dosage: 5/325MG
     Route: 048
     Dates: start: 2018
  18. VANCOMYCIN [Concomitant]
     Active Substance: VANCOMYCIN
  19. ZITHROMAX [Concomitant]
     Active Substance: AZITHROMYCIN DIHYDRATE
     Route: 048
  20. COPAXONE [Concomitant]
     Active Substance: GLATIRAMER ACETATE

REACTIONS (21)
  - Influenza [Recovered/Resolved with Sequelae]
  - Abdominal pain [Recovered/Resolved with Sequelae]
  - Cholelithiasis [Recovered/Resolved]
  - Pyrexia [Not Recovered/Not Resolved]
  - Localised infection [Not Recovered/Not Resolved]
  - Chronic obstructive pulmonary disease [Recovering/Resolving]
  - Vomiting [Not Recovered/Not Resolved]
  - Retching [Not Recovered/Not Resolved]
  - Dysarthria [Recovered/Resolved]
  - Biliary obstruction [Recovered/Resolved]
  - Dyspnoea [Recovered/Resolved]
  - Asthenia [Not Recovered/Not Resolved]
  - Anxiety [Not Recovered/Not Resolved]
  - Fatigue [Not Recovered/Not Resolved]
  - Fatigue [Not Recovered/Not Resolved]
  - Lymphoedema [Not Recovered/Not Resolved]
  - Dyspnoea [Not Recovered/Not Resolved]
  - Hepatic enzyme increased [Unknown]
  - Fall [Unknown]
  - Somnambulism [Unknown]
  - Multiple injuries [Recovered/Resolved]

NARRATIVE: CASE EVENT DATE: 20210501
